FAERS Safety Report 10005708 (Version 1)
Quarter: 2014Q1

REPORT INFORMATION
  Report Type: Spontaneous
  Country: US (occurrence: US)
  Receive Date: 20140313
  Receipt Date: 20140313
  Transmission Date: 20141002
  Serious: No
  Sender: FDA-Public Use
  Company Number: US-BIOGENIDEC-2014BI021323

PATIENT
  Sex: 0

DRUGS (7)
  1. TECFIDERA [Suspect]
     Indication: MULTIPLE SCLEROSIS
     Route: 048
     Dates: start: 20131107
  2. FOLIC ACID [Concomitant]
  3. HYDROXYUREA [Concomitant]
  4. METOPROLOL [Concomitant]
  5. LANSOPRAZOLE [Concomitant]
  6. HYDRALAZINE [Concomitant]
  7. VIT B [Concomitant]

REACTIONS (1)
  - Alopecia [Unknown]
